FAERS Safety Report 24809228 (Version 1)
Quarter: 2025Q1

REPORT INFORMATION
  Report Type: Spontaneous
  Country: GB (occurrence: GB)
  Receive Date: 20250106
  Receipt Date: 20250106
  Transmission Date: 20250409
  Serious: Yes (Other)
  Sender: TEVA
  Company Number: GB-MHRA-EMIS-143020-4e7815ec-6326-42ac-8212-83fa2ea4430c

PATIENT
  Age: 67 Year
  Sex: Male
  Weight: 97 kg

DRUGS (2)
  1. ROSUVASTATIN [Suspect]
     Active Substance: ROSUVASTATIN
     Indication: Product used for unknown indication
     Dosage: DAILY DOSE: 1 DOSAGE FORM
     Route: 065
  2. Comirnaty JN.1 COVID-19 mRNA30microg/0.3ml dose [Concomitant]
     Indication: Product used for unknown indication
     Dates: start: 20241014

REACTIONS (1)
  - Tachycardia [Not Recovered/Not Resolved]
